FAERS Safety Report 6219636-0 (Version None)
Quarter: 2009Q2

REPORT INFORMATION
  Report Type: 
  Country: None (occurrence: None)
  Receive Date: 20090609
  Receipt Date: 20090528
  Transmission Date: 20091009
  Serious: Yes (Other)
  Sender: FDA-Public Use
  Company Number: US-PFIZER INC-2005069368

PATIENT
  Sex: Female
  Weight: 68 kg

DRUGS (4)
  1. PROVERA [Suspect]
     Indication: HORMONE REPLACEMENT THERAPY
     Dosage: 10 MG, UNK
     Route: 048
     Dates: start: 19930401, end: 20000301
  2. PREMARIN [Suspect]
     Indication: HORMONE REPLACEMENT THERAPY
     Dosage: 0.625 UNK, UNK
     Route: 065
     Dates: start: 19930401, end: 20000301
  3. PREMPRO [Suspect]
     Indication: HORMONE REPLACEMENT THERAPY
     Dosage: 0.625/2.5MG
     Route: 065
     Dates: start: 20000301, end: 20030501
  4. ACETYLSALICYLIC ACID [Concomitant]
     Indication: ARTHRITIS
     Dosage: UNK
     Route: 065

REACTIONS (1)
  - BREAST CANCER FEMALE [None]
